FAERS Safety Report 4472233-X (Version None)
Quarter: 2004Q4

REPORT INFORMATION
  Report Type: 
  Country: None (occurrence: None)
  Receive Date: 20041008
  Receipt Date: 20040925
  Transmission Date: 20050328
  Serious: Yes (Other)
  Sender: FDA-Public Use
  Company Number: 2004053004

PATIENT
  Age: 54 Year
  Sex: Male

DRUGS (6)
  1. VIAGRA [Suspect]
     Indication: ERECTILE DYSFUNCTION
     Dosage: (AS NECESSARY)
  2. ACCUPRIL [Suspect]
     Indication: NEPHROTIC SYNDROME
     Dosage: 5 MG (5 MG, 1 IN 1 D), ORAL
     Route: 048
  3. ATORVASTATIN (ATORVASTATIN) [Concomitant]
     Indication: RENAL DISORDER
  4. CYCLOSPORINE [Concomitant]
  5. LEVOTHYROXINE SODIUM [Concomitant]
  6. ALL OTHER THERAPEUTIC PRODUCTS [Suspect]

REACTIONS (2)
  - FALL [None]
  - HYPOTENSION [None]
